FAERS Safety Report 13642585 (Version 1)
Quarter: 2017Q2

REPORT INFORMATION
  Report Type: Spontaneous
  Country: US (occurrence: US)
  Receive Date: 20170612
  Receipt Date: 20170612
  Transmission Date: 20170830
  Serious: Yes (Hospitalization)
  Sender: FDA-Public Use
  Company Number: US-MALLINCKRODT-T201702132

PATIENT
  Age: 55 Year
  Sex: Female

DRUGS (1)
  1. GABLOFEN [Suspect]
     Active Substance: BACLOFEN
     Indication: MUSCLE SPASTICITY
     Dosage: 341 MCG/DAY
     Route: 037

REACTIONS (4)
  - Movement disorder [Unknown]
  - Confusional state [Unknown]
  - Pain [Unknown]
  - Implant site infection [Unknown]

NARRATIVE: CASE EVENT DATE: 201702
